FAERS Safety Report 4807081-1 (Version None)
Quarter: 2005Q4

REPORT INFORMATION
  Report Type: 
  Country: None (occurrence: None)
  Receive Date: 20051019
  Receipt Date: 20051004
  Transmission Date: 20060501
  Serious: Yes (Other)
  Sender: FDA-Public Use
  Company Number: CA_051008818

PATIENT
  Age: 13 Year
  Sex: Male
  Weight: 45 kg

DRUGS (1)
  1. STRATTERA [Suspect]
     Indication: ATTENTION DEFICIT/HYPERACTIVITY DISORDER
     Dosage: 40 MG,
     Dates: start: 20050901, end: 20051001

REACTIONS (7)
  - AGITATION [None]
  - ANGER [None]
  - DEMYELINATION [None]
  - FIGHT IN SCHOOL [None]
  - MENTAL STATUS CHANGES [None]
  - SUICIDAL IDEATION [None]
  - SUICIDE ATTEMPT [None]
